FAERS Safety Report 5079341-3 (Version None)
Quarter: 2006Q3

REPORT INFORMATION
  Report Type: 
  Country: None (occurrence: None)
  Receive Date: 20060720
  Receipt Date: 20050705
  Transmission Date: 20061208
  Serious: Yes (Hospitalization)
  Sender: FDA-Public Use
  Company Number: 2005101556

PATIENT
  Age: 74 Year
  Sex: Male

DRUGS (3)
  1. CELEBREX [Suspect]
     Indication: ILL-DEFINED DISORDER
     Dates: start: 20000209
  2. PAXIL [Concomitant]
  3. ZESTORETIC [Concomitant]

REACTIONS (1)
  - CEREBROVASCULAR ACCIDENT [None]
